FAERS Safety Report 25351564 (Version 1)
Quarter: 2025Q2

REPORT INFORMATION
  Report Type: Spontaneous
  Country: US (occurrence: None)
  Receive Date: 20250522
  Receipt Date: 20250522
  Transmission Date: 20250717
  Serious: Yes (Hospitalization)
  Sender: FDA-CTU
  Company Number: None

PATIENT
  Sex: Female

DRUGS (11)
  1. BIKTARVY [Suspect]
     Active Substance: BICTEGRAVIR SODIUM\EMTRICITABINE\TENOFOVIR ALAFENAMIDE FUMARATE
     Indication: HIV infection
     Dosage: FREQUENCY : DAILY;?
     Route: 048
     Dates: start: 20200811
  2. IACETAMIN TAB 325MG [Concomitant]
  3. APAP/CODEINE TAB 300-30MG [Concomitant]
  4. AZITHROMYCIN [Concomitant]
     Active Substance: AZITHROMYCIN
  5. BUPROPION HYDROCHLORIDE [Concomitant]
     Active Substance: BUPROPION HYDROCHLORIDE
  6. CLONAZEPAM TAB 0.5MG [Concomitant]
  7. IPRATROPIUM/ SOL ALBUTER [Concomitant]
  8. LEVOTHYROXIN TAB 125MCG [Concomitant]
  9. METHIMAZOLE TAB 5MG [Concomitant]
  10. METOPROL TAR TAB 100MG [Concomitant]
  11. METOPROL TAR TAB 50MG [Concomitant]

REACTIONS (4)
  - Abdominal pain [None]
  - Pain [None]
  - Nausea [None]
  - Vomiting [None]
